FAERS Safety Report 4287875-4 (Version None)
Quarter: 2004Q1

REPORT INFORMATION
  Report Type: 
  Country: None (occurrence: None)
  Receive Date: 20040209
  Receipt Date: 20031020
  Transmission Date: 20041129
  Serious: No
  Sender: FDA-Public Use
  Company Number: US-GLAXOSMITHKLINE-A0430894A

PATIENT
  Age: 80 Year
  Sex: Female

DRUGS (3)
  1. PAXIL [Suspect]
     Dosage: 5MG PER DAY
     Route: 048
     Dates: start: 20030401
  2. ADVAIR DISKUS 100/50 [Concomitant]
  3. NORVASC [Concomitant]

REACTIONS (2)
  - RASH PRURITIC [None]
  - SKIN DESQUAMATION [None]
